FAERS Safety Report 7467003-4 (Version None)
Quarter: 2011Q2

REPORT INFORMATION
  Report Type: 
  Country: None (occurrence: None)
  Receive Date: 20110509
  Receipt Date: 20110429
  Transmission Date: 20111010
  Serious: Yes (Other)
  Sender: FDA-Public Use
  Company Number: GR-ASTRAZENECA-2011SE24995

PATIENT
  Age: 40 Year
  Sex: Male
  Weight: 70 kg

DRUGS (5)
  1. LIDOCAINE [Concomitant]
     Indication: INDUCTION OF ANAESTHESIA
  2. PROPOFOL [Interacting]
     Dosage: CONTINUOUS INUSION
     Route: 042
  3. PROPOFOL [Suspect]
     Indication: INDUCTION OF ANAESTHESIA
     Route: 042
  4. OLANZAPINE [Interacting]
     Indication: PSYCHOTIC DISORDER
  5. FENTANYL [Concomitant]
     Indication: INDUCTION OF ANAESTHESIA

REACTIONS (4)
  - DRUG INTERACTION [None]
  - UPPER AIRWAY OBSTRUCTION [None]
  - DYSTONIA [None]
  - OPISTHOTONUS [None]
